FAERS Safety Report 5551066-7 (Version None)
Quarter: 2007Q4

REPORT INFORMATION
  Report Type: 
  Country: None (occurrence: None)
  Receive Date: 20071210
  Receipt Date: 20071123
  Transmission Date: 20080405
  Serious: Yes (Other)
  Sender: FDA-Public Use
  Company Number: MPS1-10787

PATIENT
  Age: 6 Year
  Sex: Female
  Weight: 14.5 kg

DRUGS (5)
  1. ALDURAZYME [Suspect]
     Indication: MUCOPOLYSACCHARIDOSIS I
     Dosage: 0.58 MG/KG QWK IV
     Route: 042
     Dates: start: 20070719
  2. ENALAPRIL [Concomitant]
  3. FUROSEMIDE [Concomitant]
  4. CETIRIZINE HCL [Concomitant]
  5. ACETAMINOPHEN [Concomitant]

REACTIONS (5)
  - ANAPHYLACTIC REACTION [None]
  - BLOOD PRESSURE INCREASED [None]
  - PHARYNGITIS [None]
  - TONSILLITIS [None]
  - UPPER RESPIRATORY TRACT INFECTION [None]
